FAERS Safety Report 12672041 (Version 4)
Quarter: 2019Q1

REPORT INFORMATION
  Report Type: Spontaneous
  Country: US (occurrence: US)
  Receive Date: 20160822
  Receipt Date: 20190227
  Transmission Date: 20190417
  Serious: No
  Sender: FDA-Public Use
  Company Number: US-PFIZER INC-2016391484

PATIENT
  Age: 69 Year
  Sex: Female
  Weight: 86 kg

DRUGS (1)
  1. XELJANZ [Suspect]
     Active Substance: TOFACITINIB CITRATE
     Indication: RHEUMATOID ARTHRITIS
     Dosage: 5 MG, 2X/DAY (IN THE MORNING AND IN THE EVENING)
     Route: 048

REACTIONS (1)
  - Blood cholesterol increased [Not Recovered/Not Resolved]
